FAERS Safety Report 6256796-X (Version None)
Quarter: 2009Q3

REPORT INFORMATION
  Report Type: 
  Country: None (occurrence: None)
  Receive Date: 20090706
  Receipt Date: 20090630
  Transmission Date: 20100115
  Serious: Yes (Other)
  Sender: FDA-Public Use
  Company Number: US-JNJFOC-20090700432

PATIENT
  Age: 28 Year
  Sex: Female

DRUGS (1)
  1. TOPAMAX [Suspect]
     Indication: WEIGHT LOSS DIET
     Route: 048

REACTIONS (3)
  - PLATELET COUNT DECREASED [None]
  - WEIGHT DECREASED [None]
  - WHITE BLOOD CELL COUNT DECREASED [None]
